FAERS Safety Report 20532003 (Version 1)
Quarter: 2022Q1

REPORT INFORMATION
  Report Type: Report from Study
  Country: US (occurrence: US)
  Receive Date: 20220301
  Receipt Date: 20220301
  Transmission Date: 20220423
  Serious: No
  Sender: FDA-Public Use
  Company Number: US-AMRYT PHARMACEUTICALS DAC-AEGR005144

PATIENT
  Age: 21 Year
  Sex: Male
  Weight: 35.4 kg

DRUGS (13)
  1. METRELEPTIN [Suspect]
     Active Substance: METRELEPTIN
     Indication: Congenital generalised lipodystrophy
     Dosage: 1.8 MILLIGRAM, BID
     Route: 058
     Dates: start: 20150723
  2. METRELEPTIN [Suspect]
     Active Substance: METRELEPTIN
     Dosage: 2.6 MILLIGRAM, QD
     Route: 058
     Dates: start: 20170717
  3. METRELEPTIN [Suspect]
     Active Substance: METRELEPTIN
     Dosage: 3.4 MILLIGRAM, QD
     Route: 058
     Dates: start: 20190623
  4. METRELEPTIN [Suspect]
     Active Substance: METRELEPTIN
     Dosage: 3.75 MILLIGRAM (0.75ML OR 75 UNITS), QD
     Route: 058
     Dates: start: 20210617
  5. INVOKANA [Suspect]
     Active Substance: CANAGLIFLOZIN
     Indication: Diabetes mellitus
     Dosage: 100 MILLIGRAM, QD
     Route: 048
  6. CHOLECALCIFEROL [Concomitant]
     Active Substance: CHOLECALCIFEROL
     Indication: Vitamin D deficiency
     Dosage: 1000 INTERNATIONAL UNIT, QD
     Route: 048
     Dates: start: 2012
  7. ENALAPRIL [Concomitant]
     Active Substance: ENALAPRIL
     Indication: Proteinuria
     Dosage: 10 MILLIGRAM, QD
     Route: 048
  8. VITAMINS NOS [Concomitant]
     Active Substance: VITAMINS
     Indication: Product used for unknown indication
     Dosage: 1CHEWABLE TABLET, QD
     Route: 048
  9. OMEGA-3-ACID ETHYL ESTER [Concomitant]
     Active Substance: OMEGA-3-ACID ETHYL ESTERS
     Indication: Product used for unknown indication
     Dosage: 1 GRAM, QD
     Route: 048
  10. METFORMIN [Concomitant]
     Active Substance: METFORMIN HYDROCHLORIDE
     Indication: Diabetes mellitus
     Dosage: 500 MILLIGRAM, QD
     Dates: end: 202005
  11. METFORMIN [Concomitant]
     Active Substance: METFORMIN HYDROCHLORIDE
     Dosage: 1000 MILLIGRAM, BID
     Route: 048
     Dates: start: 202005
  12. VITAMIN D NOS [Concomitant]
     Active Substance: VITAMIN D NOS
     Indication: Product used for unknown indication
  13. BACTERIOSTATIC WATER [Concomitant]
     Active Substance: WATER
     Indication: Product used for unknown indication

REACTIONS (3)
  - Migraine [Recovered/Resolved]
  - Dehydration [Unknown]
  - Weight decreased [Not Recovered/Not Resolved]

NARRATIVE: CASE EVENT DATE: 20201201
